FAERS Safety Report 16325129 (Version 1)
Quarter: 2019Q2

REPORT INFORMATION
  Report Type: Spontaneous
  Country: US (occurrence: US)
  Receive Date: 20190516
  Receipt Date: 20190516
  Transmission Date: 20190711
  Serious: Yes (Life-Threatening, Hospitalization)
  Sender: FDA-Public Use
  Company Number: None

PATIENT
  Age: 71 Year
  Sex: Male
  Weight: 104 kg

DRUGS (16)
  1. CEFEPIME [Suspect]
     Active Substance: CEFEPIME HYDROCHLORIDE
     Indication: PNEUMONIA
     Route: 042
  2. BENAZEPRIL 20 MG DAILY [Concomitant]
  3. TESTOSTERONE TRANSDERMAL SOLUTION 2 PUMPS DAILY [Concomitant]
  4. AMLODIPINE 5 MG DAILY [Concomitant]
  5. NOVOLOG INSULIN 6 UNITS DAIY [Concomitant]
  6. VANCOMYCIN [Suspect]
     Active Substance: VANCOMYCIN
     Indication: PNEUMONIA
     Route: 042
  7. MAGNESIUM 400 MG DAILY [Concomitant]
  8. ASCORBIC ACID 500 MG DAILY [Concomitant]
  9. ATORVASTATIN 20 MG DAILY [Concomitant]
  10. INSULIN GLARGINE 24 UNITS DAILY [Concomitant]
  11. TRAMETINIB 2 MG DAILY [Concomitant]
  12. DABRAFENIB 150 MG TWICE DAILY [Concomitant]
  13. ASPIRIN 81 MG DAILY [Concomitant]
  14. HYDROCHLOROTHIAZIDE 25 MG DAILY [Concomitant]
  15. ALPHA LIPOIC ACID 400 MG DAILY [Concomitant]
  16. METFORMIN 2000 MG XR DAILY [Concomitant]

REACTIONS (3)
  - Acute kidney injury [None]
  - Fluid overload [None]
  - Haemodialysis [None]

NARRATIVE: CASE EVENT DATE: 20190423
